FAERS Safety Report 7774350-5 (Version None)
Quarter: 2011Q3

REPORT INFORMATION
  Report Type: 
  Country: None (occurrence: None)
  Receive Date: 20110923
  Receipt Date: 20110912
  Transmission Date: 20111222
  Serious: Yes (Death)
  Sender: FDA-Public Use
  Company Number: PHHY2011AR81068

PATIENT
  Sex: Male

DRUGS (2)
  1. DIOVAN [Suspect]
     Indication: BLOOD PRESSURE ABNORMAL
     Dosage: 160 MG, UNK
  2. EXFORGE [Suspect]
     Indication: BLOOD PRESSURE ABNORMAL
     Dosage: 160/10 MG

REACTIONS (4)
  - CEREBROVASCULAR ACCIDENT [None]
  - AORTIC ANEURYSM [None]
  - URINARY BLADDER POLYP [None]
  - BLOOD URINE PRESENT [None]
